FAERS Safety Report 9651009 (Version 2)
Quarter: 2013Q4

REPORT INFORMATION
  Report Type: Report from Study
  Country: SD (occurrence: SD)
  Receive Date: 20131029
  Receipt Date: 20131217
  Transmission Date: 20140711
  Serious: Yes (Other)
  Sender: FDA-Public Use
  Company Number: PHHY2013SD119053

PATIENT
  Sex: Female

DRUGS (2)
  1. GLIVEC [Suspect]
     Dosage: MATERNAL DOSE 400 MG
     Route: 064
  2. FOLIC ACID [Concomitant]
     Dosage: UNK UKN, UNK
     Route: 064

REACTIONS (2)
  - Premature baby [Unknown]
  - Foetal exposure during pregnancy [Unknown]
